FAERS Safety Report 14798093 (Version 2)
Quarter: 2018Q2

REPORT INFORMATION
  Report Type: Spontaneous
  Country: US (occurrence: US)
  Receive Date: 20180424
  Receipt Date: 20180502
  Transmission Date: 20180711
  Serious: Yes (Hospitalization)
  Sender: FDA-Public Use
  Company Number: US-MALLINCKRODT-T201801631

PATIENT
  Age: 52 Year
  Sex: Male
  Weight: 147 kg

DRUGS (3)
  1. FENTANYL TRANSDERMAL SYSTEM [Suspect]
     Active Substance: FENTANYL
     Dosage: ONE EVERY 72 HOURS
     Route: 062
  2. FENTANYL TRANSDERMAL SYSTEM [Suspect]
     Active Substance: FENTANYL
     Dosage: 765 MCG/HR
     Route: 062
     Dates: start: 20180420
  3. FENTANYL TRANSDERMAL SYSTEM [Suspect]
     Active Substance: FENTANYL
     Indication: BACK PAIN
     Dosage: EVERY 72 HOURS
     Route: 062

REACTIONS (10)
  - Hypopnoea [Unknown]
  - Vision blurred [Unknown]
  - Drug effect variable [Unknown]
  - Heart rate increased [Unknown]
  - Disorientation [Unknown]
  - Palpitations [Unknown]
  - Tunnel vision [Unknown]
  - Feeling abnormal [Unknown]
  - Pain [Unknown]
  - Dyspnoea [Unknown]

NARRATIVE: CASE EVENT DATE: 20180214
